FAERS Safety Report 5179090-7 (Version None)
Quarter: 2006Q4

REPORT INFORMATION
  Report Type: 
  Country: None (occurrence: None)
  Receive Date: 20061208
  Receipt Date: 20061201
  Transmission Date: 20070319
  Serious: Yes (Death)
  Sender: FDA-Public Use
  Company Number: 2006S1000240

PATIENT
  Age: 3 Day
  Sex: Male

DRUGS (9)
  1. NITRIC OXIDE [Suspect]
     Indication: LUNG DISORDER
     Dosage: 5 PPM;INH_GAS; INH;CONT
     Route: 055
     Dates: start: 20061128, end: 20061130
  2. NITRIC OXIDE [Suspect]
     Indication: PROPHYLAXIS
     Dosage: 5 PPM;INH_GAS; INH;CONT
     Route: 055
     Dates: start: 20061128, end: 20061130
  3. AMPICILLIN [Concomitant]
  4. CARNITENE /ITA/ (CARNITINE HYDROCHLORIDE) [Concomitant]
  5. CAFFEINE (CAFFEINE) [Concomitant]
  6. AMPHOTERICIN B [Concomitant]
  7. SODIUM BICARBONATE IN PLASTIC CONTAINER [Concomitant]
  8. HYDROCORTISONE [Concomitant]
  9. CUROSURF (CUROSURF) [Concomitant]

REACTIONS (5)
  - BRADYCARDIA [None]
  - JAUNDICE [None]
  - OXYGEN SATURATION DECREASED [None]
  - PULMONARY HAEMORRHAGE [None]
  - THERAPY NON-RESPONDER [None]
